FAERS Safety Report 4323925-4 (Version None)
Quarter: 2004Q1

REPORT INFORMATION
  Report Type: 
  Country: None (occurrence: None)
  Receive Date: 20040323
  Receipt Date: 20030820
  Transmission Date: 20041129
  Serious: Yes (Disabling)
  Sender: FDA-Public Use
  Company Number: 200324704BWH

PATIENT
  Sex: Female

DRUGS (2)
  1. BAYCOL [Suspect]
     Indication: BLOOD CHOLESTEROL INCREASED
     Dosage: SEE IMAGE
     Route: 048
     Dates: start: 20000301, end: 20010601
  2. BAYCOL [Suspect]
     Indication: BLOOD CHOLESTEROL INCREASED
     Dosage: SEE IMAGE
     Route: 048
     Dates: start: 20010601, end: 20010801

REACTIONS (5)
  - CHROMATURIA [None]
  - DIFFICULTY IN WALKING [None]
  - FATIGUE [None]
  - MUSCLE ATROPHY [None]
  - MYALGIA [None]
